FAERS Safety Report 14158883 (Version 2)
Quarter: 2017Q4

REPORT INFORMATION
  Report Type: Spontaneous
  Country: FR (occurrence: FR)
  Receive Date: 20171106
  Receipt Date: 20171129
  Transmission Date: 20180321
  Serious: Yes (Other)
  Sender: FDA-Public Use
  Company Number: FR-MERCK KGAA-2033247

PATIENT
  Age: 60 Year
  Sex: Female

DRUGS (2)
  1. LEVOTHYROX [Suspect]
     Active Substance: LEVOTHYROXINE
     Dates: start: 2017
  2. NOVOTHYROX [Suspect]
     Active Substance: LEVOTHYROXINE SODIUM
     Indication: PRODUCT USED FOR UNKNOWN INDICATION
     Dates: start: 2017

REACTIONS (14)
  - Cough [None]
  - Muscle spasms [None]
  - Insomnia [None]
  - Respiratory disorder [None]
  - Weight decreased [None]
  - Fatigue [None]
  - Dyspnoea [None]
  - Gastrooesophageal reflux disease [None]
  - Weight increased [Not Recovered/Not Resolved]
  - Constipation [None]
  - Headache [None]
  - Arthralgia [None]
  - Vertigo [None]
  - Loss of personal independence in daily activities [None]

NARRATIVE: CASE EVENT DATE: 2017
